FAERS Safety Report 4357399-4 (Version None)
Quarter: 2004Q2

REPORT INFORMATION
  Report Type: 
  Country: None (occurrence: None)
  Receive Date: 20040506
  Receipt Date: 20040423
  Transmission Date: 20050107
  Serious: Yes (Life-Threatening, Hospitalization)
  Sender: FDA-Public Use
  Company Number: 2004-00158FE

PATIENT
  Age: 32 Year
  Sex: Male

DRUGS (2)
  1. PENTASA [Suspect]
     Indication: COLITIS ULCERATIVE
     Route: 048
     Dates: start: 20040312, end: 20040315
  2. TIAPRIDAL (TIAPRIDAL) (TIAPRIDE) [Suspect]
     Indication: SCIATICA
     Route: 048

REACTIONS (7)
  - DILATATION VENTRICULAR [None]
  - DRUG INTERACTION [None]
  - MYOCARDITIS [None]
  - PERICARDIAL EFFUSION [None]
  - SCIATICA [None]
  - VENTRICULAR FIBRILLATION [None]
  - VENTRICULAR HYPOKINESIA [None]
